FAERS Safety Report 23487014 (Version 1)
Quarter: 2024Q1

REPORT INFORMATION
  Report Type: Spontaneous
  Country: US (occurrence: None)
  Receive Date: 20240205
  Receipt Date: 20240205
  Transmission Date: 20240410
  Serious: Yes (Hospitalization)
  Sender: FDA-Public Use
  Company Number: None

PATIENT
  Sex: Female

DRUGS (3)
  1. TACROLIMUS [Suspect]
     Active Substance: TACROLIMUS
     Indication: Renal transplant
     Dosage: 2MG AM/1MG PM  TWICE A DAY BY MOUTH?
     Route: 048
     Dates: start: 202306
  2. MYCOPHENOLIC ACID [Suspect]
     Active Substance: MYCOPHENOLIC ACID
     Indication: Renal transplant
     Dosage: 500MG TWICE A DAY BY MOUTH?
     Route: 048
     Dates: start: 202306
  3. TACROLIMUS (SANDOZ) [Concomitant]

REACTIONS (1)
  - Blood test abnormal [None]
